FAERS Safety Report 4959392-7 (Version None)
Quarter: 2006Q1

REPORT INFORMATION
  Report Type: 
  Country: None (occurrence: None)
  Receive Date: 20060201
  Receipt Date: 20051130
  Transmission Date: 20060701
  Serious: No
  Sender: FDA-Public Use
  Company Number: 2005PV005204

PATIENT
  Age: 55 Year
  Sex: Female
  Weight: 106.5953 kg

DRUGS (11)
  1. BYETTA [Suspect]
     Indication: DIABETES MELLITUS NON-INSULIN-DEPENDENT
     Dosage: SEE IMAGE
     Route: 058
     Dates: start: 20051109, end: 20051120
  2. BYETTA [Suspect]
     Indication: DIABETES MELLITUS NON-INSULIN-DEPENDENT
     Dosage: SEE IMAGE
     Route: 058
     Dates: start: 20051124
  3. GLUCOPHAGE [Concomitant]
  4. ATACAND [Concomitant]
  5. CRESTOR [Concomitant]
  6. NEXIUM [Concomitant]
  7. METOPROLOL TARTRATE [Concomitant]
  8. NEURONTIN [Concomitant]
  9. TRIVITATA [Concomitant]
  10. CENTRUM SILVER [Concomitant]
  11. PRO OMEGA [Concomitant]

REACTIONS (7)
  - ANOREXIA [None]
  - DIZZINESS [None]
  - INJECTION SITE ERYTHEMA [None]
  - NAUSEA [None]
  - RASH ERYTHEMATOUS [None]
  - RASH PRURITIC [None]
  - SKIN BURNING SENSATION [None]
